FAERS Safety Report 10777153 (Version 1)
Quarter: 2015Q1

REPORT INFORMATION
  Report Type: Spontaneous
  Country: US (occurrence: None)
  Receive Date: 20150206
  Receipt Date: 20150206
  Transmission Date: 20150721
  Serious: Yes (Life-Threatening, Hospitalization)
  Sender: FDA-Public Use
  Company Number: None

PATIENT
  Age: 64 Year
  Sex: Male
  Weight: 117.94 kg

DRUGS (6)
  1. ENBREL [Suspect]
     Active Substance: ETANERCEPT
  2. LISENIPRIL [Concomitant]
  3. VERAPAMIL [Concomitant]
     Active Substance: VERAPAMIL HYDROCHLORIDE
  4. TIMALOL [Concomitant]
  5. HUMIRA [Suspect]
     Active Substance: ADALIMUMAB
  6. WARFARIN [Concomitant]
     Active Substance: WARFARIN

REACTIONS (5)
  - Cough [None]
  - Non-Hodgkin^s lymphoma [None]
  - Dyspnoea [None]
  - Pulmonary embolism [None]
  - Pneumonia [None]

NARRATIVE: CASE EVENT DATE: 20060329
